FAERS Safety Report 4684240-2 (Version None)
Quarter: 2005Q2

REPORT INFORMATION
  Report Type: 
  Country: None (occurrence: None)
  Receive Date: 20050607
  Receipt Date: 20050505
  Transmission Date: 20051028
  Serious: Yes (Other)
  Sender: FDA-Public Use
  Company Number: PHEH2005US05195

PATIENT
  Age: 64 Year
  Sex: Female
  Weight: 56 kg

DRUGS (11)
  1. FASLODEX [Concomitant]
     Dosage: UNK, QW
     Route: 030
     Dates: start: 20030401, end: 20040201
  2. XELODA [Concomitant]
     Indication: BREAST CANCER METASTATIC
     Dosage: 500 MG, BID 1 WK ON 1 WK OFF
     Dates: start: 20040318, end: 20041111
  3. ALBUTEROL [Concomitant]
     Indication: DYSPNOEA
     Dosage: 2 PUFFS EVERY 6 HOURS
     Dates: start: 20000101
  4. ALBUTEROL [Concomitant]
     Dosage: UNK, LEVEL 4
  5. TIMOPTIC [Concomitant]
     Indication: GLAUCOMA
     Dosage: 1 GTT, QHS EACH EYE
     Dates: start: 19950101
  6. PRILOSEC [Concomitant]
     Indication: GASTROOESOPHAGEAL REFLUX DISEASE
     Dosage: 20 MG, QD
     Dates: start: 20010101
  7. MULTI-VITAMINS [Concomitant]
     Dosage: UNK, QD
  8. PREDNISONE TAB [Concomitant]
     Indication: PROPHYLAXIS
     Dosage: UNK, PRN
  9. HERCEPTIN [Concomitant]
     Indication: BREAST CANCER
     Dosage: 109 MG PER WEEK
     Dates: start: 20000331
  10. FLONASE [Concomitant]
     Indication: RHINITIS
     Dosage: 1 SPRAY QHS
     Dates: start: 20000101
  11. ZOMETA [Suspect]
     Indication: BREAST CANCER METASTATIC
     Dosage: 4 MG EVERY MONTH
     Route: 042
     Dates: start: 20030404, end: 20050127

REACTIONS (8)
  - ASEPTIC NECROSIS BONE [None]
  - BONE DISORDER [None]
  - ERYTHEMA [None]
  - GLOSSITIS [None]
  - JAW OPERATION [None]
  - OSTEONECROSIS [None]
  - PAIN IN JAW [None]
  - X-RAY DENTAL [None]
